FAERS Safety Report 5925351-0 (Version None)
Quarter: 2008Q4

REPORT INFORMATION
  Report Type: 
  Country: None (occurrence: None)
  Receive Date: 20081021
  Receipt Date: 20081009
  Transmission Date: 20090506
  Serious: Yes (Other)
  Sender: FDA-Public Use
  Company Number: FR-JNJCH-2008051714

PATIENT
  Sex: Female

DRUGS (1)
  1. ALOSTIL 2% [Suspect]
     Indication: ALOPECIA
     Dosage: TEXT:ONCE A DAY
     Route: 061
     Dates: start: 19930101, end: 20081008

REACTIONS (1)
  - NEURITIS [None]
